FAERS Safety Report 11125342 (Version 1)
Quarter: 2015Q2

REPORT INFORMATION
  Report Type: Spontaneous
  Country: US (occurrence: US)
  Receive Date: 20150520
  Receipt Date: 20150520
  Transmission Date: 20150821
  Serious: No
  Sender: FDA-Public Use
  Company Number: US-009507513-1505USA007167

PATIENT
  Sex: Female
  Weight: 55 kg

DRUGS (2)
  1. NADOLOL. [Concomitant]
     Active Substance: NADOLOL
     Indication: MIGRAINE PROPHYLAXIS
     Dosage: UNK
  2. MAXALT [Suspect]
     Active Substance: RIZATRIPTAN BENZOATE
     Indication: MIGRAINE
     Dosage: 10 MG, ONCE A DAY
     Route: 048
     Dates: start: 201504

REACTIONS (1)
  - Drug ineffective [Unknown]

NARRATIVE: CASE EVENT DATE: 2015
